FAERS Safety Report 8341371-3 (Version None)
Quarter: 2012Q2

REPORT INFORMATION
  Report Type: 
  Country: None (occurrence: None)
  Receive Date: 20120507
  Receipt Date: 20120427
  Transmission Date: 20120825
  Serious: Yes (Other)
  Sender: FDA-Public Use
  Company Number: US-JNJFOC-20120403230

PATIENT
  Sex: Male
  Weight: 119.75 kg

DRUGS (2)
  1. XARELTO [Suspect]
     Route: 048
  2. XARELTO [Suspect]
     Indication: THROMBOSIS PROPHYLAXIS
     Route: 048
     Dates: start: 20120111, end: 20120123

REACTIONS (1)
  - TRANSFUSION [None]
